FAERS Safety Report 8160812-8 (Version None)
Quarter: 2012Q1

REPORT INFORMATION
  Report Type: 
  Country: None (occurrence: None)
  Receive Date: 20120223
  Receipt Date: 20120220
  Transmission Date: 20120608
  Serious: Yes (Life-Threatening)
  Sender: FDA-Public Use
  Company Number: PHHY2011DE100560

PATIENT
  Sex: Female
  Weight: 75 kg

DRUGS (7)
  1. RASILEZ [Suspect]
     Indication: HYPERTENSION
     Dosage: 300 MG, QD
     Route: 048
     Dates: end: 20111107
  2. TRAMADOL HCL [Concomitant]
  3. AMLODIPINE [Concomitant]
     Dosage: 10 MG, PER DAY
     Route: 048
  4. TORSEMIDE [Suspect]
     Indication: HYPERTENSION
     Dosage: 10 MG, PER DAY
     Route: 048
  5. NOVALGIN [Concomitant]
  6. RAMIPRIL [Suspect]
     Indication: HYPERTENSION
     Dosage: 10 MG, PER DAY
     Route: 048
  7. SIMVASTATIN [Concomitant]
     Dosage: 40 MG, PER DAY

REACTIONS (4)
  - URINE OUTPUT DECREASED [None]
  - OEDEMA [None]
  - RENAL FAILURE ACUTE [None]
  - METABOLIC ACIDOSIS [None]
